FAERS Safety Report 9646372 (Version 1)
Quarter: 2013Q4

REPORT INFORMATION
  Report Type: Spontaneous
  Country: GB (occurrence: GB)
  Receive Date: 20131025
  Receipt Date: 20131025
  Transmission Date: 20140711
  Serious: Yes (Other)
  Sender: FDA-Public Use
  Company Number: GB-MYLANLABS-2013S1023424

PATIENT
  Age: 22 Year
  Sex: Female
  Weight: 64.5 kg

DRUGS (2)
  1. ISOTRETINOIN [Suspect]
     Indication: ACNE
     Dosage: 2 TOTAL
     Dates: start: 20130708, end: 20130709
  2. CILEST [Suspect]
     Indication: PRODUCT USED FOR UNKNOWN INDICATION

REACTIONS (2)
  - Pregnancy on contraceptive [Unknown]
  - Exposure during pregnancy [Unknown]
